FAERS Safety Report 8132095-6 (Version None)
Quarter: 2012Q1

REPORT INFORMATION
  Report Type: 
  Country: None (occurrence: None)
  Receive Date: 20120213
  Receipt Date: 20120207
  Transmission Date: 20120608
  Serious: Yes (Hospitalization)
  Sender: FDA-Public Use
  Company Number: IN-PFIZER INC-2011276437

PATIENT
  Age: 60 Year
  Sex: Male

DRUGS (3)
  1. SUTENT [Suspect]
     Indication: METASTATIC RENAL CELL CARCINOMA
     Dosage: 50 MG, 1X/DAY
     Route: 048
     Dates: start: 20110625
  2. SUTENT [Suspect]
     Dosage: 50 MG, 1X/DAY
     Route: 048
     Dates: start: 20111217
  3. SUTENT [Suspect]
     Dosage: 50 MG, 1X/DAY
     Route: 048
     Dates: start: 20111015

REACTIONS (6)
  - BLOOD SODIUM DECREASED [None]
  - ASTHENIA [None]
  - HYPERCHLORHYDRIA [None]
  - JOINT SWELLING [None]
  - DYSPEPSIA [None]
  - TESTICULAR SWELLING [None]
